FAERS Safety Report 12427574 (Version 1)
Quarter: 2016Q2

REPORT INFORMATION
  Report Type: Spontaneous
  Country: US (occurrence: US)
  Receive Date: 20160602
  Receipt Date: 20160602
  Transmission Date: 20160815
  Serious: No
  Sender: FDA-Public Use
  Company Number: US-BIOGEN-2016BI00237999

PATIENT
  Sex: Female

DRUGS (1)
  1. TYSABRI [Suspect]
     Active Substance: NATALIZUMAB
     Indication: MULTIPLE SCLEROSIS
     Dates: start: 20130201, end: 20140303

REACTIONS (5)
  - Eye disorder [Unknown]
  - Visual impairment [Unknown]
  - Anxiety [Unknown]
  - Tongue disorder [Unknown]
  - Speech disorder [Unknown]
